FAERS Safety Report 10887005 (Version 4)
Quarter: 2015Q2

REPORT INFORMATION
  Report Type: Spontaneous
  Country: IT (occurrence: IT)
  Receive Date: 20150304
  Receipt Date: 20150513
  Transmission Date: 20150821
  Serious: Yes (Other)
  Sender: FDA-Public Use
  Company Number: IT-PFIZER INC-2015073339

PATIENT
  Age: 65 Year
  Sex: Female
  Weight: 68 kg

DRUGS (14)
  1. ENDOXAN-BAXTER [Suspect]
     Active Substance: CYCLOPHOSPHAMIDE
     Indication: NON-HODGKIN^S LYMPHOMA
     Dosage: 700 MG, CYCLIC
     Route: 042
     Dates: start: 20141215
  2. MABTHERA [Suspect]
     Active Substance: RITUXIMAB
     Indication: NON-HODGKIN^S LYMPHOMA
     Dosage: 100 MG, CYCLIC (100MG + 500MG FOR TOTAL OF 600MG)
     Route: 042
     Dates: start: 20141223
  3. BACTRIM [Concomitant]
     Active Substance: SULFAMETHOXAZOLE\TRIMETHOPRIM
     Dosage: UNK
     Route: 048
     Dates: start: 20141215
  4. ALLOPURINOL TEVA [Concomitant]
     Active Substance: ALLOPURINOL
     Dosage: 300 MG, UNK
     Route: 048
     Dates: start: 20141215
  5. ADRIBLASTINA [Suspect]
     Active Substance: DOXORUBICIN HYDROCHLORIDE
     Indication: NON-HODGKIN^S LYMPHOMA
     Dosage: 50 MG, CYCLIC
     Route: 042
     Dates: start: 20141215
  6. FUROSEMIDE. [Concomitant]
     Active Substance: FUROSEMIDE
     Dosage: 25 MG, UNK
     Route: 048
     Dates: start: 20141215
  7. VINCRISTINA PFIZER ITALIA [Suspect]
     Active Substance: VINCRISTINE
     Indication: NON-HODGKIN^S LYMPHOMA
     Dosage: 1 MG, CYCLIC
     Route: 042
     Dates: start: 20141215
  8. PREDNISONE. [Concomitant]
     Active Substance: PREDNISONE
     Dosage: 25 MG, UNK
     Route: 048
     Dates: start: 20141215
  9. LANSOPRAZOLE. [Concomitant]
     Active Substance: LANSOPRAZOLE
     Dosage: 30 MG, UNK
     Route: 048
     Dates: start: 20141215
  10. MABTHERA [Suspect]
     Active Substance: RITUXIMAB
     Dosage: 500 MG, CYCLIC (100MG + 500MG FOR TOTAL OF 600MG)
     Route: 042
     Dates: start: 20141223
  11. PRIXAR [Concomitant]
     Dosage: UNK
     Dates: start: 20141215
  12. PARACODINA [Concomitant]
     Active Substance: ASPIRIN\CAFFEINE\DIHYDROCODEINE BITARTRATE
     Dosage: UNK
     Dates: start: 20141215
  13. ALDACTONE [Concomitant]
     Active Substance: SPIRONOLACTONE
     Dosage: 100 MG, UNK
     Route: 048
     Dates: start: 20141215
  14. FLUIFORT [Concomitant]

REACTIONS (6)
  - Full blood count decreased [Unknown]
  - Neutropenia [Recovering/Resolving]
  - Lymphocyte percentage decreased [Unknown]
  - Leukopenia [Recovering/Resolving]
  - Platelet count decreased [Recovering/Resolving]
  - Red blood cell count decreased [Not Recovered/Not Resolved]

NARRATIVE: CASE EVENT DATE: 20150108
